FAERS Safety Report 18048664 (Version 1)
Quarter: 2020Q3

REPORT INFORMATION
  Report Type: Spontaneous
  Country: US (occurrence: US)
  Receive Date: 20200720
  Receipt Date: 20200720
  Transmission Date: 20201103
  Serious: Yes (Hospitalization)
  Sender: FDA-Public Use
  Company Number: None

PATIENT
  Age: 88 Year
  Sex: Male

DRUGS (3)
  1. IRON [Concomitant]
     Active Substance: IRON
  2. VEMLIDY [Suspect]
     Active Substance: TENOFOVIR ALAFENAMIDE FUMARATE
     Route: 048
     Dates: start: 20180201
  3. MYRBETRIQ [Concomitant]
     Active Substance: MIRABEGRON

REACTIONS (1)
  - Therapy interrupted [None]

NARRATIVE: CASE EVENT DATE: 20200717
